FAERS Safety Report 9903577 (Version 2)
Quarter: 2014Q1

REPORT INFORMATION
  Report Type: Spontaneous
  Country: US (occurrence: US)
  Receive Date: 20140217
  Receipt Date: 20140314
  Transmission Date: 20141002
  Serious: No
  Sender: FDA-Public Use
  Company Number: US-GILEAD-2014-0094612

PATIENT
  Sex: Female

DRUGS (10)
  1. RANEXA [Suspect]
     Indication: ANGINA PECTORIS
     Dosage: 1000 MG, BID
     Route: 048
  2. RANEXA [Suspect]
     Dosage: 500 MG, BID
     Route: 048
  3. RANEXA [Suspect]
     Dosage: 500 MG, BID
     Route: 048
  4. COREG [Concomitant]
  5. ATORVASTATIN [Concomitant]
  6. NIACIN [Concomitant]
  7. NAPROXEN [Concomitant]
  8. ASA [Concomitant]
  9. VIT D [Concomitant]
  10. NITROSTAT [Concomitant]

REACTIONS (1)
  - Confusional state [Recovered/Resolved]
